FAERS Safety Report 16638805 (Version 1)
Quarter: 2019Q3

REPORT INFORMATION
  Report Type: Spontaneous
  Country: US (occurrence: US)
  Receive Date: 20190726
  Receipt Date: 20190726
  Transmission Date: 20191004
  Serious: No
  Sender: FDA-Public Use
  Company Number: US-BAYER-2019-127840

PATIENT
  Age: 75 Year
  Sex: Female

DRUGS (2)
  1. MIRALAX [Suspect]
     Active Substance: POLYETHYLENE GLYCOL 3350
     Dosage: 0.5 DF, QOD
  2. MIRALAX [Suspect]
     Active Substance: POLYETHYLENE GLYCOL 3350
     Dosage: 0.25 DF, TIW

REACTIONS (6)
  - Flatulence [Unknown]
  - Diarrhoea [Unknown]
  - Product prescribing error [Unknown]
  - Incorrect dose administered [Unknown]
  - Abdominal distension [Unknown]
  - Discomfort [Unknown]
